FAERS Safety Report 9055459 (Version 1)
Quarter: 2013Q1

REPORT INFORMATION
  Report Type: Spontaneous
  Country: NL (occurrence: NL)
  Receive Date: 20130206
  Receipt Date: 20130206
  Transmission Date: 20140127
  Serious: Yes (Life-Threatening)
  Sender: FDA-Public Use
  Company Number: NL-BAYER-2013-011970

PATIENT
  Age: 72 Year
  Sex: Female
  Weight: 64 kg

DRUGS (1)
  1. NAPROXEN SODIUM ({= 220 MG) [Suspect]
     Indication: RHEUMATOID ARTHRITIS
     Dosage: 500 MG, QD
     Dates: start: 2005, end: 20121217

REACTIONS (2)
  - Amnesia [Recovered/Resolved]
  - Altered state of consciousness [Recovered/Resolved]
